FAERS Safety Report 9283703 (Version 1)
Quarter: 2013Q2

REPORT INFORMATION
  Report Type: Spontaneous
  Country: US (occurrence: None)
  Receive Date: 20130508
  Receipt Date: 20130508
  Transmission Date: 20140414
  Serious: Yes (Death, Hospitalization)
  Sender: FDA-Public Use
  Company Number: 2013STPI000144

PATIENT
  Age: 69 Year
  Sex: Male

DRUGS (1)
  1. MATULANE [Suspect]
     Indication: LYMPHOMA
     Dosage: 50 MG. QD, ORAL
     Route: 048
     Dates: start: 20130207, end: 2013

REACTIONS (2)
  - Pyrexia [None]
  - Pneumonia [None]
